FAERS Safety Report 16903163 (Version 5)
Quarter: 2020Q3

REPORT INFORMATION
  Report Type: Report from Study
  Country: FR (occurrence: FR)
  Receive Date: 20191010
  Receipt Date: 20200907
  Transmission Date: 20201102
  Serious: Yes (Hospitalization, Other)
  Sender: FDA-Public Use
  Company Number: FR-PFIZER INC-2019431330

PATIENT
  Age: 83 Year
  Sex: Male
  Weight: 80 kg

DRUGS (42)
  1. ADOPORT [Suspect]
     Active Substance: TACROLIMUS
     Dosage: 12 MG, UNK
     Route: 048
     Dates: start: 20190712, end: 20190731
  2. ADOPORT [Suspect]
     Active Substance: TACROLIMUS
     Dosage: 8 MG
     Route: 048
     Dates: start: 20191130, end: 20200118
  3. NOVORAPID [Concomitant]
     Active Substance: INSULIN ASPART
     Dosage: UNK
     Dates: start: 20190614
  4. PHLOROGLUCINOL [Concomitant]
     Active Substance: PHLOROGLUCINOL
     Dosage: UNK
     Dates: start: 20190613, end: 20190620
  5. SOLU?MEDROL [Suspect]
     Active Substance: METHYLPREDNISOLONE SODIUM SUCCINATE
     Indication: PROPHYLAXIS AGAINST TRANSPLANT REJECTION
     Dosage: 500 MG, UNK
     Dates: start: 20190613
  6. SOLU?MEDROL [Suspect]
     Active Substance: METHYLPREDNISOLONE SODIUM SUCCINATE
     Dosage: UNK
     Dates: start: 20190723, end: 20190725
  7. ADOPORT [Suspect]
     Active Substance: TACROLIMUS
     Dosage: 11 MG, UNK
     Route: 048
     Dates: start: 20190621, end: 20190622
  8. ADOPORT [Suspect]
     Active Substance: TACROLIMUS
     Dosage: 11 MG, UNK
     Route: 048
     Dates: start: 20190705, end: 20190712
  9. LANSOPRAZOLE. [Concomitant]
     Active Substance: LANSOPRAZOLE
     Dosage: UNK
     Dates: start: 20190614, end: 20190704
  10. MYFORTIC [Concomitant]
     Active Substance: MYCOPHENOLATE SODIUM
     Dosage: UNK
     Dates: start: 20190613
  11. LEDERFOLINE [Concomitant]
     Active Substance: LEUCOVORIN CALCIUM
     Dosage: UNK
     Dates: start: 20190619
  12. ADOPORT [Suspect]
     Active Substance: TACROLIMUS
     Indication: RENAL TRANSPLANT
     Dosage: 14 MG, UNK
     Route: 048
     Dates: start: 20190613, end: 20190621
  13. ADOPORT [Suspect]
     Active Substance: TACROLIMUS
     Dosage: UNK
  14. CALCIPARINE [Concomitant]
     Active Substance: HEPARIN CALCIUM
     Dosage: UNK
     Dates: start: 20190614, end: 20190620
  15. BISOCE [Concomitant]
     Active Substance: BISOPROLOL
     Dosage: UNK
     Dates: start: 20190614
  16. FUROSEMIDE. [Concomitant]
     Active Substance: FUROSEMIDE
     Indication: POLYURIA
     Dosage: UNK
     Dates: start: 20190614, end: 20190617
  17. OXYBUTYNIN. [Concomitant]
     Active Substance: OXYBUTYNIN CHLORIDE
     Dosage: UNK
     Dates: start: 20190615, end: 20190619
  18. VALGANCICLOVIR. [Concomitant]
     Active Substance: VALGANCICLOVIR
     Dosage: UNK
     Dates: start: 20190614
  19. KARDEGIC [Concomitant]
     Active Substance: ASPIRIN DL-LYSINE
     Dosage: UNK
     Dates: start: 20190614
  20. ADOPORT [Suspect]
     Active Substance: TACROLIMUS
     Dosage: 6 MG
     Route: 048
     Dates: start: 20190928, end: 20191130
  21. ADOPORT [Suspect]
     Active Substance: TACROLIMUS
     Dosage: 5 MG
     Route: 048
     Dates: start: 20200421
  22. LASILIX [FUROSEMIDE] [Suspect]
     Active Substance: FUROSEMIDE
     Indication: POLYURIA
     Dosage: 80 MG, UNK
     Dates: start: 20190620, end: 20190621
  23. COLCHICINE. [Suspect]
     Active Substance: COLCHICINE
     Indication: GOUT
  24. EZETROL [Concomitant]
     Active Substance: EZETIMIBE
     Dosage: UNK
     Dates: start: 20190614
  25. ADOPORT [Suspect]
     Active Substance: TACROLIMUS
     Dosage: 10 MG, UNK
     Route: 048
     Dates: start: 20190625, end: 20190627
  26. ADOPORT [Suspect]
     Active Substance: TACROLIMUS
     Dosage: 9 MG, UNK
     Route: 048
     Dates: start: 20190627, end: 20190705
  27. ADOPORT [Suspect]
     Active Substance: TACROLIMUS
     Dosage: 6 MG
     Route: 048
     Dates: start: 20200613
  28. CORTANCYL [Concomitant]
     Active Substance: PREDNISONE
     Dosage: UNK
     Dates: start: 20190615
  29. ZOPICLONE [Concomitant]
     Active Substance: ZOPICLONE
     Dosage: UNK
     Dates: start: 20190618, end: 20190618
  30. ARANESP [Concomitant]
     Active Substance: DARBEPOETIN ALFA
     Dosage: UNK
     Dates: start: 20190614
  31. PARACETAMOL [Concomitant]
     Active Substance: ACETAMINOPHEN
     Dosage: UNK
     Dates: start: 20190613, end: 20190618
  32. SOLU?MEDROL [Suspect]
     Active Substance: METHYLPREDNISOLONE SODIUM SUCCINATE
     Dosage: 120 MG, UNK (TREATMENT DURATION: ONE DAY)
     Dates: start: 20190614, end: 20190614
  33. LANSOYL [Concomitant]
     Active Substance: MINERAL OIL
     Dosage: UNK
     Dates: start: 20190614, end: 20190619
  34. FUROSEMIDE. [Concomitant]
     Active Substance: FUROSEMIDE
     Dosage: UNK
     Dates: start: 20190620, end: 20190621
  35. CORDARONE [Concomitant]
     Active Substance: AMIODARONE HYDROCHLORIDE
     Dosage: UNK
     Dates: start: 20190614
  36. BACTRIM [Concomitant]
     Active Substance: SULFAMETHOXAZOLE\TRIMETHOPRIM
     Dosage: UNK
     Dates: start: 20190620
  37. ADOPORT [Suspect]
     Active Substance: TACROLIMUS
     Dosage: 8 MG, UNK
     Route: 048
     Dates: start: 20190814, end: 20190828
  38. ADOPORT [Suspect]
     Active Substance: TACROLIMUS
     Dosage: 6 MG, UNK
     Route: 048
     Dates: start: 20190828
  39. ADOPORT [Suspect]
     Active Substance: TACROLIMUS
     Dosage: 6 MG
     Route: 048
     Dates: start: 20200118, end: 20200421
  40. TRAMADOL. [Concomitant]
     Active Substance: TRAMADOL
     Dosage: UNK
     Dates: start: 20190620, end: 20190620
  41. ADOPORT [Suspect]
     Active Substance: TACROLIMUS
     Dosage: 8 MG, UNK
     Route: 048
     Dates: start: 20190622, end: 20190625
  42. ADOPORT [Suspect]
     Active Substance: TACROLIMUS
     Dosage: 6 MG, UNK
     Route: 048
     Dates: start: 20190731, end: 20190814

REACTIONS (21)
  - Disease recurrence [Recovering/Resolving]
  - Transplant rejection [Recovered/Resolved]
  - Acute kidney injury [Recovered/Resolved]
  - Hyperleukocytosis [Recovered/Resolved]
  - Diarrhoea [Recovered/Resolved]
  - Diarrhoea [Recovered/Resolved]
  - Acute kidney injury [Recovered/Resolved]
  - Overdose [Recovered/Resolved]
  - Overdose [Recovered/Resolved]
  - Diarrhoea [Recovering/Resolving]
  - Bladder spasm [Recovered/Resolved]
  - Coronary ostial stenosis [Recovered/Resolved]
  - Urinary tract infection [Recovered/Resolved]
  - Gait disturbance [Recovering/Resolving]
  - Anaemia [Not Recovered/Not Resolved]
  - Bacterial pyelonephritis [Recovered/Resolved]
  - Kidney transplant rejection [Recovered/Resolved]
  - Oedema peripheral [Not Recovered/Not Resolved]
  - Gout [Recovering/Resolving]
  - Diabetes mellitus [Recovering/Resolving]
  - Hyperglycaemia [Recovered/Resolved]

NARRATIVE: CASE EVENT DATE: 20190614
